FAERS Safety Report 6493793-3 (Version None)
Quarter: 2009Q4

REPORT INFORMATION
  Report Type: 
  Country: None (occurrence: None)
  Receive Date: 20091214
  Receipt Date: 20081103
  Transmission Date: 20100525
  Serious: No
  Sender: FDA-Public Use
  Company Number: US-BRISTOL-MYERS SQUIBB COMPANY-14393748

PATIENT
  Age: 16 Year
  Sex: Female
  Weight: 73 kg

DRUGS (2)
  1. ABILIFY [Suspect]
     Indication: MOOD SWINGS
     Dosage: STARTED AS 2.5 MG DAILY 4-6 WEEKS AGO
  2. CELEXA [Concomitant]

REACTIONS (1)
  - DRUG INEFFECTIVE [None]
